FAERS Safety Report 22516564 (Version 1)
Quarter: 2023Q2

REPORT INFORMATION
  Report Type: Spontaneous
  Country: US (occurrence: US)
  Receive Date: 20230603
  Receipt Date: 20230603
  Transmission Date: 20230722
  Serious: Yes (Hospitalization, Other)
  Sender: FDA-Public Use
  Company Number: US-SPECGX-T202301284

PATIENT
  Age: 20 Year
  Sex: Female

DRUGS (8)
  1. ACETAMINOPHEN\OXYCODONE HYDROCHLORIDE [Suspect]
     Active Substance: ACETAMINOPHEN\OXYCODONE HYDROCHLORIDE
     Indication: Pain
     Dosage: UNK
     Route: 065
  2. MORPHINE [Suspect]
     Active Substance: MORPHINE
     Indication: Abdominal pain
     Dosage: 90 MILLIGRAM, QD
     Route: 042
  3. MORPHINE [Suspect]
     Active Substance: MORPHINE
     Dosage: 360 MILLIGRAM, QD
     Route: 042
  4. DESIPRAMINE [Suspect]
     Active Substance: DESIPRAMINE
     Indication: Abdominal pain
     Dosage: UNK
     Route: 065
  5. DULOXETINE [Suspect]
     Active Substance: DULOXETINE
     Indication: Drug withdrawal maintenance therapy
     Dosage: 30 MILLIGRAM, QD
     Route: 065
  6. LORAZEPAM [Suspect]
     Active Substance: LORAZEPAM
     Indication: Drug withdrawal maintenance therapy
     Dosage: 1 MILLIGRAM, TID
     Route: 065
  7. QUETIAPINE [Suspect]
     Active Substance: QUETIAPINE
     Indication: Drug withdrawal maintenance therapy
     Dosage: 100 MILLIGRAM, QHS
     Route: 065
  8. CLONIDINE [Suspect]
     Active Substance: CLONIDINE
     Indication: Drug withdrawal maintenance therapy
     Dosage: 0.1 MILLIGRAM, TID
     Route: 065

REACTIONS (4)
  - Narcotic bowel syndrome [Unknown]
  - Hospitalisation [Unknown]
  - Substance use [Unknown]
  - Drug dependence [Unknown]
